FAERS Safety Report 9312354 (Version 1)
Quarter: 2013Q2

REPORT INFORMATION
  Report Type: Spontaneous
  Country: IT (occurrence: IT)
  Receive Date: 20130528
  Receipt Date: 20130528
  Transmission Date: 20140414
  Serious: Yes (Other)
  Sender: FDA-Public Use
  Company Number: IT-JNJFOC-20130512540

PATIENT
  Age: 56 Year
  Sex: Male

DRUGS (1)
  1. TOPAMAX [Suspect]
     Indication: PRODUCT USED FOR UNKNOWN INDICATION
     Dosage: UNKNOWN DOSAGE OF 200 MG TABLETS
     Route: 048
     Dates: start: 20130517, end: 20130517

REACTIONS (3)
  - Self injurious behaviour [Unknown]
  - Overdose [Unknown]
  - Coma [Unknown]
